FAERS Safety Report 20258718 (Version 1)
Quarter: 2021Q4

REPORT INFORMATION
  Report Type: Spontaneous
  Country: DE (occurrence: DE)
  Receive Date: 20211230
  Receipt Date: 20211230
  Transmission Date: 20220304
  Serious: Yes (Hospitalization)
  Sender: FDA-Public Use
  Company Number: DE-ADRED-07182-01

PATIENT
  Age: 80 Year
  Sex: Female

DRUGS (7)
  1. ARIPIPRAZOLE [Suspect]
     Active Substance: ARIPIPRAZOLE
     Indication: Product used for unknown indication
     Dosage: 20 MILLIGRAM, QD, 1-0-0-0, TABLETTEN
  2. OLANZAPINE [Suspect]
     Active Substance: OLANZAPINE
     Dosage: 5 MILLIGRAM, QD, 1-0-0-0, TABLETTEN
  3. OLANZAPINE [Suspect]
     Active Substance: OLANZAPINE
     Indication: Product used for unknown indication
     Dosage: 20 MILLIGRAM, QD, 0-0-1-0, TABLETTEN
  4. PIPAMPERONE HYDROCHLORIDE [Suspect]
     Active Substance: PIPAMPERONE HYDROCHLORIDE
     Indication: Product used for unknown indication
     Dosage: 40 MILLIGRAM, 0.5-0-0-1, TABLETTEN
  5. TORSEMIDE [Concomitant]
     Active Substance: TORSEMIDE
     Dosage: 5 MILLIGRAM, 0.5-0-0-0, TABLETTEN
  6. AMLODIPINE BESYLATE [Concomitant]
     Active Substance: AMLODIPINE BESYLATE
     Dosage: 5 MG, 0.5-0-0.5-0, TABLETTEN
  7. LEVOTHYROXINE SODIUM [Concomitant]
     Active Substance: LEVOTHYROXINE SODIUM
     Dosage: 100 MICROGRAM, 100 ?G, 1-0-0-0, TABLETTEN

REACTIONS (4)
  - Angina pectoris [Unknown]
  - Medication error [Unknown]
  - Depressed level of consciousness [Unknown]
  - Syncope [Unknown]
